FAERS Safety Report 23630981 (Version 1)
Quarter: 2024Q1

REPORT INFORMATION
  Report Type: Spontaneous
  Country: US (occurrence: US)
  Receive Date: 20240314
  Receipt Date: 20240314
  Transmission Date: 20240410
  Serious: Yes (Other)
  Sender: FDA-Public Use
  Company Number: US-MLMSERVICE-20240226-4847438-1

PATIENT
  Age: 67 Year
  Sex: Male

DRUGS (2)
  1. AMIODARONE HYDROCHLORIDE [Suspect]
     Active Substance: AMIODARONE HYDROCHLORIDE
     Indication: Ventricular extrasystoles
     Dosage: 200 MILLIGRAM, ONCE A DAY
     Route: 065
  2. IRON [Concomitant]
     Active Substance: IRON
     Indication: Iron deficiency
     Dosage: UNK
     Route: 065

REACTIONS (3)
  - Bone marrow granuloma [Recovering/Resolving]
  - Self-medication [Recovered/Resolved]
  - Intentional product misuse [Unknown]
